FAERS Safety Report 5732824-2 (Version None)
Quarter: 2008Q2

REPORT INFORMATION
  Report Type: 
  Country: None (occurrence: None)
  Receive Date: 20080507
  Receipt Date: 20080507
  Transmission Date: 20081010
  Serious: Yes (Hospitalization)
  Sender: FDA-Public Use
  Company Number: None

PATIENT
  Age: 23 Year
  Sex: Female

DRUGS (1)
  1. LAMOTRIGINE [Suspect]
     Indication: BIPOLAR DISORDER
     Dosage: 25MG QD PO
     Route: 048

REACTIONS (4)
  - PAIN [None]
  - SWELLING [None]
  - URINARY RETENTION [None]
  - URINARY TRACT OBSTRUCTION [None]
